FAERS Safety Report 9552633 (Version 1)
Quarter: 2013Q3

REPORT INFORMATION
  Report Type: Spontaneous
  Country: US (occurrence: None)
  Receive Date: 20130924
  Receipt Date: 20130924
  Transmission Date: 20140515
  Serious: No
  Sender: FDA-Public Use
  Company Number: None

PATIENT
  Age: 9 Year
  Sex: Male
  Weight: 34.93 kg

DRUGS (1)
  1. RISPERIDONE [Suspect]
     Indication: AUTISM

REACTIONS (2)
  - Product substitution issue [None]
  - Drug effect decreased [None]
